FAERS Safety Report 8834097 (Version 1)
Quarter: 2012Q4

REPORT INFORMATION
  Report Type: Spontaneous
  Country: US (occurrence: None)
  Receive Date: 20121011
  Receipt Date: 20121011
  Transmission Date: 20130627
  Serious: No
  Sender: FDA-Public Use
  Company Number: None

PATIENT
  Age: 38 Year
  Sex: Female
  Weight: 58.06 kg

DRUGS (2)
  1. METHYLPREDNISOLONE [Suspect]
     Indication: EPIDURAL INJECTION
     Dates: start: 20120913, end: 20120913
  2. METHYLPREDNISOLONE [Suspect]
     Indication: EPIDURAL INJECTION
     Dates: start: 20120927, end: 20120927

REACTIONS (6)
  - Headache [None]
  - Nausea [None]
  - Pyrexia [None]
  - Musculoskeletal stiffness [None]
  - Photophobia [None]
  - Disturbance in attention [None]
